FAERS Safety Report 13777085 (Version 2)
Quarter: 2021Q4

REPORT INFORMATION
  Report Type: Report from Study
  Country: GB (occurrence: GB)
  Receive Date: 20170721
  Receipt Date: 20211027
  Transmission Date: 20220304
  Serious: Yes (Hospitalization, Other)
  Sender: FDA-Public Use
  Company Number: GB-BRISTOL-MYERS SQUIBB COMPANY-BMS-2017-061399

PATIENT
  Age: 49 Year
  Sex: Female

DRUGS (2)
  1. NIVOLUMAB [Suspect]
     Active Substance: NIVOLUMAB
     Indication: Vulval cancer
     Dosage: 1 MG/KG, Q2WK,DOSAGE: 240MG
     Route: 042
     Dates: start: 20170628, end: 20170628
  2. IPILIMUMAB [Suspect]
     Active Substance: IPILIMUMAB
     Indication: Vulval cancer
     Dosage: 3 MG/KG, EVERY 3 WEEKS
     Route: 042
     Dates: start: 20170628, end: 20170628

REACTIONS (2)
  - Encephalopathy [Recovered/Resolved]
  - Diarrhoea [Recovered/Resolved]

NARRATIVE: CASE EVENT DATE: 20170708
